FAERS Safety Report 8771395 (Version 7)
Quarter: 2014Q3

REPORT INFORMATION
  Report Type: Spontaneous
  Country: US (occurrence: US)
  Receive Date: 20120906
  Receipt Date: 20140821
  Transmission Date: 20150326
  Serious: Yes (Life-Threatening, Hospitalization, Other)
  Sender: FDA-Public Use
  Company Number: US-GLAXOSMITHKLINE-A0992173A

PATIENT
  Age: 61 Year
  Sex: Male
  Weight: 95 kg

DRUGS (7)
  1. TRACLEER [Concomitant]
     Active Substance: BOSENTAN\BOSENTAN MONOHYDRATE
  2. COUMADIN [Concomitant]
     Active Substance: WARFARIN SODIUM
  3. FLOLAN [Suspect]
     Active Substance: EPOPROSTENOL SODIUM
     Indication: PULMONARY ARTERIAL HYPERTENSION
     Dosage: 10NGKM CONTINUOUS
     Route: 042
     Dates: start: 20110210, end: 20140811
  4. FUROSEMIDE. [Concomitant]
     Active Substance: FUROSEMIDE
  5. UNSPECIFIED [Concomitant]
     Active Substance: UNSPECIFIED INGREDIENT
  6. ECOTRIN [Concomitant]
     Active Substance: ASPIRIN
  7. DILTIAZEM [Concomitant]
     Active Substance: DILTIAZEM

REACTIONS (11)
  - Device related infection [Recovered/Resolved]
  - Depressed level of consciousness [Unknown]
  - Subdural haematoma [Unknown]
  - Intensive care [Not Recovered/Not Resolved]
  - Condition aggravated [Unknown]
  - Craniocerebral injury [Unknown]
  - Medical device complication [Unknown]
  - Therapy cessation [Unknown]
  - Investigation [Unknown]
  - Central venous catheterisation [Recovered/Resolved]
  - Craniotomy [Unknown]

NARRATIVE: CASE EVENT DATE: 20120821
